FAERS Safety Report 15854979 (Version 2)
Quarter: 2019Q1

REPORT INFORMATION
  Report Type: Report from Study
  Country: DE (occurrence: DE)
  Receive Date: 20190122
  Receipt Date: 20190125
  Transmission Date: 20190417
  Serious: Yes (Death, Hospitalization, Other)
  Sender: FDA-Public Use
  Company Number: DE-PURDUE PHARMA-GBR-2019-0063535

PATIENT
  Sex: Male
  Weight: 75 kg

DRUGS (10)
  1. SYREA [Concomitant]
     Active Substance: HYDROXYUREA
     Indication: PRODUCT USED FOR UNKNOWN INDICATION
     Dosage: 2000 MG, UNK
     Route: 065
     Dates: start: 20130606
  2. METAMIZOLE [Concomitant]
     Active Substance: METAMIZOLE
     Indication: ABDOMINAL PAIN
     Dosage: 120 DROP, DAILY [120 DRP, QD]
     Route: 065
  3. SYREA [Concomitant]
     Active Substance: HYDROXYUREA
     Dosage: 2500 MG, QD
     Route: 065
     Dates: start: 20130122, end: 20130602
  4. HYDROMORPHONE HYDROCHLORIDE. [Suspect]
     Active Substance: HYDROMORPHONE HYDROCHLORIDE
     Indication: SPLENOMEGALY
     Dosage: 8 MG, BID [2 DF DAILY]
     Route: 065
     Dates: start: 20130606, end: 20130612
  5. SYREA [Concomitant]
     Active Substance: HYDROXYUREA
     Dosage: 1500 MG, QD
     Route: 065
     Dates: start: 20130603, end: 20130605
  6. LEVOFLOXACIN. [Concomitant]
     Active Substance: LEVOFLOXACIN
     Indication: C-REACTIVE PROTEIN INCREASED
     Dosage: 500 MG, QD
     Route: 065
     Dates: start: 20130604, end: 20130605
  7. LITALIR [Concomitant]
     Active Substance: HYDROXYUREA
     Indication: MYELOFIBROSIS
     Dosage: 2500 MG, QD
     Route: 065
     Dates: start: 20130729
  8. HYDROMORPHONE HYDROCHLORIDE. [Suspect]
     Active Substance: HYDROMORPHONE HYDROCHLORIDE
     Indication: ABDOMINAL PAIN
     Dosage: UNK
     Route: 065
  9. TILIDINE [Concomitant]
     Active Substance: TILIDINE
     Indication: ABDOMINAL PAIN
     Dosage: 50 MG, BID
     Route: 065
     Dates: start: 20130603, end: 20130605
  10. RAMIPRIL. [Concomitant]
     Active Substance: RAMIPRIL
     Indication: PRODUCT USED FOR UNKNOWN INDICATION
     Dosage: 5 MG, QD
     Route: 065
     Dates: start: 20100419, end: 2013

REACTIONS (12)
  - Neutrophil count increased [Unknown]
  - White blood cell count increased [Unknown]
  - Platelet count decreased [Unknown]
  - Acute myeloid leukaemia [Fatal]
  - Haemoglobin decreased [Recovering/Resolving]
  - Asthenia [Recovered/Resolved]
  - Abdominal pain [Recovered/Resolved]
  - Dizziness [Recovered/Resolved]
  - Glomerular filtration rate decreased [Unknown]
  - Splenomegaly [Recovered/Resolved]
  - C-reactive protein increased [Recovering/Resolving]
  - Blood lactate dehydrogenase increased [Unknown]

NARRATIVE: CASE EVENT DATE: 20130603
